FAERS Safety Report 13789163 (Version 1)
Quarter: 2017Q3

REPORT INFORMATION
  Report Type: Spontaneous
  Country: US (occurrence: US)
  Receive Date: 20170725
  Receipt Date: 20170725
  Transmission Date: 20171127
  Serious: Yes (Hospitalization)
  Sender: FDA-Public Use
  Company Number: US-FRESENIUS KABI-FK201706245

PATIENT
  Age: 27 Year
  Sex: Female

DRUGS (1)
  1. PARACETAMOL (MANUFACTURER UNKNOWN) [Suspect]
     Active Substance: ACETAMINOPHEN
     Indication: TOOTHACHE
     Route: 065

REACTIONS (5)
  - Foetal distress syndrome [Recovered/Resolved]
  - Exposure during pregnancy [Recovered/Resolved]
  - Placental necrosis [Recovered/Resolved]
  - Overdose [Recovered/Resolved]
  - Hepatocellular injury [Recovered/Resolved]
